FAERS Safety Report 22826361 (Version 3)
Quarter: 2023Q4

REPORT INFORMATION
  Report Type: Report from Study
  Country: JP (occurrence: JP)
  Receive Date: 20230816
  Receipt Date: 20231218
  Transmission Date: 20240109
  Serious: Yes (Death, Hospitalization)
  Sender: FDA-Public Use
  Company Number: JP-ABBVIE-21K-087-4192728-00

PATIENT
  Age: 76 Year
  Sex: Male
  Weight: 50 kg

DRUGS (9)
  1. VENCLEXTA [Suspect]
     Active Substance: VENETOCLAX
     Indication: Acute myeloid leukaemia
     Route: 048
     Dates: start: 20210406, end: 20210406
  2. VENCLEXTA [Suspect]
     Active Substance: VENETOCLAX
     Indication: Acute myeloid leukaemia
     Route: 048
     Dates: start: 20210604, end: 20210604
  3. VENCLEXTA [Suspect]
     Active Substance: VENETOCLAX
     Indication: Acute myeloid leukaemia
     Route: 048
     Dates: start: 20210407, end: 20210407
  4. VENCLEXTA [Suspect]
     Active Substance: VENETOCLAX
     Indication: Acute myeloid leukaemia
     Dosage: LAST ADMIN DATE- APR 2021
     Route: 048
     Dates: start: 20210408
  5. VENCLEXTA [Suspect]
     Active Substance: VENETOCLAX
     Indication: Acute myeloid leukaemia
     Dosage: LAST ADMIN DATE- 2021
     Route: 048
     Dates: start: 20210413
  6. AZACITIDINE [Suspect]
     Active Substance: AZACITIDINE
     Indication: Acute myeloid leukaemia
     Dosage: ROUTE OF ADMINISTRATION: INJECTION
     Route: 065
     Dates: start: 20210517, end: 20210523
  7. AZACITIDINE [Suspect]
     Active Substance: AZACITIDINE
     Indication: Acute myeloid leukaemia
     Dosage: ROUTE OF ADMINISTRATION: INJECTION
     Route: 065
     Dates: start: 20210406, end: 20210412
  8. FILGRASTIM [Concomitant]
     Active Substance: FILGRASTIM
     Indication: Infection prophylaxis
     Dates: start: 20210429, end: 20210511
  9. FLUCONAZOLE [Concomitant]
     Active Substance: FLUCONAZOLE
     Indication: Infection prophylaxis
     Route: 048
     Dates: end: 20210602

REACTIONS (3)
  - Febrile neutropenia [Fatal]
  - Transaminases increased [Not Recovered/Not Resolved]
  - Acute kidney injury [Fatal]

NARRATIVE: CASE EVENT DATE: 20210421
